FAERS Safety Report 6731871-1 (Version None)
Quarter: 2010Q2

REPORT INFORMATION
  Report Type: 
  Country: None (occurrence: None)
  Receive Date: 20100519
  Receipt Date: 20100513
  Transmission Date: 20101027
  Serious: Yes (Other)
  Sender: FDA-Public Use
  Company Number: US-SANOFI-AVENTIS-2010SA025427

PATIENT
  Age: 81 Year
  Sex: Male
  Weight: 68.04 kg

DRUGS (11)
  1. FEXOFENADINE HYDROCHLORIDE/PSEUDOEPHEDRINE HYDROCHLORIDE [Suspect]
     Dosage: 60 MG/120 MG BID
     Route: 048
     Dates: start: 20100109, end: 20100111
  2. ATENOLOL [Concomitant]
  3. CLOPIDOGREL [Concomitant]
  4. CLOPIDOGREL [Concomitant]
     Indication: ANTICOAGULANT THERAPY
  5. CLOPIDOGREL [Concomitant]
  6. RANITIDINE [Concomitant]
     Indication: GASTRIC DISORDER
  7. FINASTERIDE [Concomitant]
  8. VITAMIN C [Concomitant]
  9. ZINC [Concomitant]
  10. NIACIN [Concomitant]
  11. FISH OIL [Concomitant]

REACTIONS (3)
  - DYSURIA [None]
  - PENILE PAIN [None]
  - URINARY TRACT OBSTRUCTION [None]
